FAERS Safety Report 4307125-X (Version None)
Quarter: 2004Q1

REPORT INFORMATION
  Report Type: 
  Country: None (occurrence: None)
  Receive Date: 20040225
  Receipt Date: 20040211
  Transmission Date: 20041129
  Serious: Yes (Other)
  Sender: FDA-Public Use
  Company Number: USA031151590

PATIENT
  Age: 62 Year
  Sex: Male

DRUGS (7)
  1. XIGRIS [Suspect]
     Indication: SEPSIS
     Dosage: 24 UG/KG/HR
     Dates: start: 20031101, end: 20031104
  2. DOPAMINE HCL [Concomitant]
  3. NEOSYNEPHRINE BADRIAL (PHENYLEPHRINE HYDROCHLORIDE) [Concomitant]
  4. VANCOMYCIN [Concomitant]
  5. CEFTAZIDIME [Concomitant]
  6. CYTOXAN [Concomitant]
  7. TNKASE [Concomitant]

REACTIONS (5)
  - FAECAL OCCULT BLOOD POSITIVE [None]
  - GASTROINTESTINAL HAEMORRHAGE [None]
  - HAEMATOCRIT DECREASED [None]
  - HAEMOGLOBIN DECREASED [None]
  - THROMBOCYTOPENIA [None]
